FAERS Safety Report 4576703-5 (Version None)
Quarter: 2005Q1

REPORT INFORMATION
  Report Type: 
  Country: None (occurrence: None)
  Receive Date: 20050207
  Receipt Date: 20050126
  Transmission Date: 20050727
  Serious: Yes (Other)
  Sender: FDA-Public Use
  Company Number: 05-000077

PATIENT
  Age: 53 Year
  Sex: Female
  Weight: 43.5 kg

DRUGS (2)
  1. ESTRACE [Suspect]
     Indication: ATROPHIC VULVITIS
     Dosage: 1 G, WEEKLY, VAGINAL
     Route: 067
     Dates: start: 20030301, end: 20050125
  2. MULTIVITAMIN [Concomitant]

REACTIONS (2)
  - HAEMORRHAGIC OVARIAN CYST [None]
  - OVARIAN CANCER [None]
